FAERS Safety Report 5367027-7 (Version None)
Quarter: 2007Q2

REPORT INFORMATION
  Report Type: 
  Country: None (occurrence: None)
  Receive Date: 20070622
  Receipt Date: 20070618
  Transmission Date: 20071010
  Serious: Yes (Other)
  Sender: FDA-Public Use
  Company Number: A0654150A

PATIENT
  Sex: Female

DRUGS (5)
  1. WELLBUTRIN [Suspect]
     Indication: DEPRESSION
     Dosage: 200MG PER DAY
     Route: 048
  2. PAROXETINE HYDROCHLORIDE [Suspect]
     Indication: DEPRESSION
     Route: 048
  3. LAMICTAL [Suspect]
     Indication: BIPOLAR II DISORDER
     Route: 048
     Dates: start: 20070601
  4. PROZAC [Suspect]
     Indication: DEPRESSION
     Dosage: 60MG PER DAY
     Route: 065
  5. TRANXENE [Concomitant]
     Indication: DRUG USE FOR UNKNOWN INDICATION
     Dosage: 30MG AT NIGHT
     Route: 065

REACTIONS (18)
  - ABNORMAL BEHAVIOUR [None]
  - AGGRESSION [None]
  - ANGER [None]
  - APALLIC SYNDROME [None]
  - CRYING [None]
  - DEPRESSED LEVEL OF CONSCIOUSNESS [None]
  - DEPRESSION [None]
  - DRUG TOXICITY [None]
  - HYPERSOMNIA [None]
  - INTENTIONAL SELF-INJURY [None]
  - LIMB INJURY [None]
  - LOGORRHOEA [None]
  - MEMORY IMPAIRMENT [None]
  - NAUSEA [None]
  - PSEUDODEMENTIA [None]
  - SOCIAL AVOIDANT BEHAVIOUR [None]
  - SUICIDAL IDEATION [None]
  - VIOLENT IDEATION [None]
